FAERS Safety Report 9886342 (Version 3)
Quarter: 2014Q2

REPORT INFORMATION
  Report Type: Report from Study
  Country: BR (occurrence: BR)
  Receive Date: 20140210
  Receipt Date: 20140408
  Transmission Date: 20141212
  Serious: Yes (Other)
  Sender: FDA-Public Use
  Company Number: PHHY2014BR015948

PATIENT
  Age: 86 Year
  Sex: Female
  Weight: 71 kg

DRUGS (9)
  1. ACLASTA [Suspect]
     Indication: OSTEOPOROSIS
     Dosage: 5 MG, UNK
     Route: 042
     Dates: start: 2011
  2. ACLASTA [Suspect]
     Dosage: 5 MG, UNK
     Route: 042
     Dates: start: 2012
  3. BENICAR [Concomitant]
     Indication: HYPERTENSION
     Dosage: 1 DF, DAILY
     Dates: start: 2012
  4. AAS [Concomitant]
     Indication: COAGULOPATHY
     Dosage: 1 DF, QD
     Route: 048
     Dates: start: 2007
  5. CALCIUM CARBONATE W/COLECALCIFEROL [Concomitant]
     Indication: BONE DISORDER
     Dosage: 1 DF, QD
     Route: 048
  6. GINKGO BILOBA LEAF [Concomitant]
     Indication: CEREBRAL DISORDER
     Dosage: 1 DF, QD
     Route: 048
     Dates: start: 2007
  7. CITONEURIN [Concomitant]
     Indication: PARALYSIS
     Dosage: 1 DF, QD
     Dates: start: 2007
  8. BENERVA [Concomitant]
     Dosage: 1 DF, QD
  9. ADALAT [Concomitant]
     Indication: HYPERTENSION
     Dosage: 1 DF, QD

REACTIONS (5)
  - Retinal vascular thrombosis [Recovering/Resolving]
  - Visual impairment [Unknown]
  - Fall [Recovering/Resolving]
  - Gait disturbance [Recovering/Resolving]
  - Muscular weakness [Recovering/Resolving]
